FAERS Safety Report 4617863-7 (Version None)
Quarter: 2005Q1

REPORT INFORMATION
  Report Type: 
  Country: None (occurrence: None)
  Receive Date: 20050322
  Receipt Date: 20050222
  Transmission Date: 20050727
  Serious: Yes (Life-Threatening)
  Sender: FDA-Public Use
  Company Number: 396102

PATIENT
  Age: 24 Year
  Sex: Female

DRUGS (6)
  1. PERIDPINE           (NICARDIPINE) [Suspect]
     Indication: PREGNANCY INDUCED HYPERTENSION
     Dosage: 48 MG 1X PER CONTINUOUS / INTRAVENOUS DRIP
     Route: 041
     Dates: start: 20050117, end: 20050217
  2. APRESOLINE [Concomitant]
  3. MAGNESOL           (GLUCOSE/MAGNESIUM NOS) [Concomitant]
  4. RITODRINE HCL [Concomitant]
  5. METHYLDOPA [Concomitant]
  6. NITROGLYCERIN [Concomitant]

REACTIONS (7)
  - BLOOD FIBRINOGEN INCREASED [None]
  - CAESAREAN SECTION [None]
  - DRUG EXPOSURE DURING PREGNANCY [None]
  - HEADACHE [None]
  - HEPATIC FUNCTION ABNORMAL [None]
  - NAUSEA [None]
  - PLATELET COUNT DECREASED [None]
